FAERS Safety Report 7462145-1 (Version None)
Quarter: 2011Q2

REPORT INFORMATION
  Report Type: 
  Country: None (occurrence: None)
  Receive Date: 20110506
  Receipt Date: 20110414
  Transmission Date: 20111010
  Serious: Yes (Life-Threatening, Hospitalization, Other)
  Sender: FDA-Public Use
  Company Number: US-BAYER-201040922NA

PATIENT
  Age: 32 Year
  Sex: Female
  Weight: 84.807 kg

DRUGS (12)
  1. HYDROCHLOROTHIAZIDE [Concomitant]
  2. COLACE [Concomitant]
  3. BACTRIN [Concomitant]
  4. YAZ [Suspect]
     Indication: MENSTRUAL CYCLE MANAGEMENT
     Dosage: UNK UNK, QD
     Route: 048
     Dates: start: 20070801, end: 20071101
  5. LOESTRIN FE 1/20 [Concomitant]
  6. HYDROCHLOROTHIAZIDE [Concomitant]
     Dosage: 30 MG, UNK
     Route: 048
  7. ATENOLOL [Concomitant]
  8. FERROUS SULFATE TAB [Concomitant]
  9. SPIRONOLACTONE [Concomitant]
     Dosage: 25 MG, UNK
     Route: 048
  10. MEDROXYPROGESTERONE [Concomitant]
     Dosage: 7 MG, UNK
     Route: 048
  11. ATENOLOL [Concomitant]
     Dosage: 100 MG, UNK
     Route: 048
  12. TOPROL-XL [Concomitant]

REACTIONS (3)
  - BRADYCARDIA [None]
  - PULMONARY EMBOLISM [None]
  - SYNCOPE [None]
